FAERS Safety Report 23150812 (Version 1)
Quarter: 2023Q4

REPORT INFORMATION
  Report Type: Spontaneous
  Country: US (occurrence: US)
  Receive Date: 20231106
  Receipt Date: 20231106
  Transmission Date: 20240110
  Serious: Yes (Hospitalization)
  Sender: FDA-Public Use
  Company Number: US-SA-SAC20231031001680

PATIENT
  Age: 80 Year
  Sex: Female

DRUGS (17)
  1. DUPIXENT [Suspect]
     Active Substance: DUPILUMAB
     Indication: Dermatitis atopic
     Dosage: 300 MG, QOW
     Route: 058
  2. AMLODIPINE [Concomitant]
     Active Substance: AMLODIPINE BESYLATE
     Dosage: UNK
  3. INCRUSE ELLIPTA [Concomitant]
     Active Substance: UMECLIDINIUM BROMIDE
  4. LOSARTAN POTASSIUM [Concomitant]
     Active Substance: LOSARTAN POTASSIUM
  5. BISOPROLOL FUMARATE [Concomitant]
     Active Substance: BISOPROLOL FUMARATE
  6. KENALOG [Concomitant]
     Active Substance: TRIAMCINOLONE ACETONIDE
  7. LIPITOR [Concomitant]
     Active Substance: ATORVASTATIN CALCIUM
  8. MONTELUKAST [Concomitant]
     Active Substance: MONTELUKAST SODIUM
  9. OMEPRAZOLE [Concomitant]
     Active Substance: OMEPRAZOLE
  10. SPIRIVA [Concomitant]
     Active Substance: TIOTROPIUM BROMIDE MONOHYDRATE
  11. ALBUTEROL SULFATE [Concomitant]
     Active Substance: ALBUTEROL SULFATE
  12. ACETAMINOPHEN\ASCORBIC ACID [Concomitant]
     Active Substance: ACETAMINOPHEN\ASCORBIC ACID
  13. CODEINE SULFATE [Concomitant]
     Active Substance: CODEINE SULFATE
  14. DICLOFENAC SODIUM [Concomitant]
     Active Substance: DICLOFENAC\DICLOFENAC SODIUM
  15. DROXIDOPA [Concomitant]
     Active Substance: DROXIDOPA
  16. FLUDROCORTISONE [Concomitant]
     Active Substance: FLUDROCORTISONE
  17. NITROGLYCERIN [Concomitant]
     Active Substance: NITROGLYCERIN

REACTIONS (12)
  - Hypertension [Not Recovered/Not Resolved]
  - Heart rate decreased [Not Recovered/Not Resolved]
  - Dyspnoea exertional [Not Recovered/Not Resolved]
  - Fatigue [Not Recovered/Not Resolved]
  - Onychomycosis [Not Recovered/Not Resolved]
  - Insomnia [Not Recovered/Not Resolved]
  - Nervous system disorder [Not Recovered/Not Resolved]
  - COVID-19 [Not Recovered/Not Resolved]
  - Increased viscosity of upper respiratory secretion [Not Recovered/Not Resolved]
  - Throat clearing [Not Recovered/Not Resolved]
  - Dysphonia [Not Recovered/Not Resolved]
  - Sputum discoloured [Not Recovered/Not Resolved]
